FAERS Safety Report 9614680 (Version 2)
Quarter: 2013Q4

REPORT INFORMATION
  Report Type: Report from Study
  Country: US (occurrence: US)
  Receive Date: 20131011
  Receipt Date: 20131011
  Transmission Date: 20140711
  Serious: Yes (Hospitalization, Other)
  Sender: FDA-Public Use
  Company Number: US-DENDREON CORPORATION-2013PROUSA03097

PATIENT
  Age: 81 Year
  Sex: Male
  Weight: 76.19 kg

DRUGS (18)
  1. PLETAL [Concomitant]
     Indication: HYPERTENSION
     Dosage: 50 MG, BID
     Route: 048
  2. PLAVIX [Concomitant]
     Dosage: 300 MG, QD
     Route: 048
  3. HUMALOG [Concomitant]
     Dosage: 20 UNITS, TID
  4. CRESTOR [Concomitant]
     Indication: HYPERCHOLESTEROLAEMIA
     Dosage: 10 MG, QD
     Route: 048
  5. INSULIN GLARGINE [Concomitant]
     Dosage: 35 UNITS, QD
  6. METFORMIN HYDROCHLORIDE [Concomitant]
     Indication: DIABETES MELLITUS
     Dosage: 100 UNK, UNK
  7. EZETIMIBE [Concomitant]
     Indication: HYPERCHOLESTEROLAEMIA
     Dosage: 10 MG, UNK
  8. SITAGLIPTIN [Concomitant]
     Indication: DIABETES MELLITUS
     Dosage: 25 MG, UNK
  9. GLIPIZIDE [Concomitant]
     Indication: DIABETES MELLITUS
     Dosage: 5, 10 MG
  10. CALCIUM WITH VITAMIN D [Concomitant]
     Dosage: 600 MG, UNK
  11. ASPIRIN [Concomitant]
     Indication: PROPHYLAXIS
     Dosage: 81 MG, UNK
  12. SIPULEUCEL-T [Suspect]
     Indication: PROSTATE CANCER METASTATIC
     Dosage: 250 ML, SINGLE
     Route: 042
     Dates: start: 20130815, end: 20130815
  13. ZOFRAN [Concomitant]
  14. RAMIPRIL [Concomitant]
     Indication: HYPERTENSION
     Dosage: 2.5 MG, UNK
     Route: 048
  15. IMDUR [Concomitant]
     Indication: CARDIAC DISORDER
     Dosage: 60 MG, QD
     Route: 048
  16. NITROGLYCERIN [Concomitant]
     Indication: CHEST PAIN
     Dosage: 0.8 MG, UNK
     Route: 060
  17. METOPROLOL [Concomitant]
     Indication: HYPERTENSION
     Dosage: 25 MG, QD
     Route: 048
  18. HYDROCHLOROTHIAZIDE [Concomitant]
     Indication: HYPERTENSION
     Dosage: 25 MG, UNK

REACTIONS (2)
  - Confusional state [Not Recovered/Not Resolved]
  - Urethral stenosis [Recovered/Resolved]
